FAERS Safety Report 10089362 (Version 1)
Quarter: 2014Q2

REPORT INFORMATION
  Report Type: Spontaneous
  Country: US (occurrence: None)
  Receive Date: 20140418
  Receipt Date: 20140418
  Transmission Date: 20141212
  Serious: Yes (Hospitalization)
  Sender: FDA-Public Use
  Company Number: None

PATIENT
  Age: 63 Year
  Sex: Male
  Weight: 88.6 kg

DRUGS (1)
  1. ALFA 2 INTERFERON 2B [Suspect]
     Dates: end: 20120120

REACTIONS (3)
  - Malaise [None]
  - Memory impairment [None]
  - Deafness [None]
